FAERS Safety Report 9512123 (Version 2)
Quarter: 2013Q4

REPORT INFORMATION
  Report Type: Spontaneous
  Country: US (occurrence: US)
  Receive Date: 20130910
  Receipt Date: 20131021
  Transmission Date: 20140711
  Serious: Yes (Hospitalization, Other)
  Sender: FDA-Public Use
  Company Number: US-UCBSA-096477

PATIENT
  Age: 57 Year
  Sex: Female
  Weight: 140.6 kg

DRUGS (42)
  1. LORTAB [Suspect]
     Indication: ARTHRALGIA
     Dosage: DOSE: 10MG/650MG, TWICE DAILY
     Route: 048
     Dates: start: 20120910, end: 20121223
  2. LORTAB [Suspect]
     Indication: ARTHRALGIA
     Dosage: DOSE: 10MG/650MG, TWICE DAILY
     Route: 048
     Dates: start: 20120910, end: 20121223
  3. LORTAB [Suspect]
     Indication: BACK PAIN
     Dosage: DOSE: 10MG/650MG, TWICE DAILY
     Route: 048
     Dates: start: 20120910, end: 20121223
  4. CELEXOCIB; IBUPROFEN; NAPROXEN; PLACEBO [Suspect]
     Indication: OSTEOARTHRITIS
     Dates: start: 20110623, end: 20121224
  5. CELEXOCIB; IBUPROFEN; NAPROXEN; PLACEBO [Suspect]
     Indication: OSTEOARTHRITIS
     Dates: start: 20121227, end: 20130219
  6. CELEXOCIB; IBUPROFEN; NAPROXEN; PLACEBO [Suspect]
     Indication: OSTEOARTHRITIS
     Dates: start: 20130302, end: 20130307
  7. ZYRTEC [Concomitant]
     Indication: HYPERSENSITIVITY
     Dates: start: 20110913
  8. NEXIUM [Concomitant]
     Indication: GASTROINTESTINAL DISORDER
     Route: 048
     Dates: start: 20110913, end: 20121224
  9. NEXIUM [Concomitant]
     Indication: GASTROINTESTINAL DISORDER
     Route: 048
     Dates: start: 20121227, end: 20130219
  10. NEXIUM [Concomitant]
     Indication: GASTROINTESTINAL DISORDER
     Route: 048
     Dates: start: 20130302, end: 20130307
  11. NEXIUM [Concomitant]
     Indication: GASTROINTESTINAL DISORDER
     Dates: start: 20130321
  12. ALBUTEROL HFA [Concomitant]
     Indication: CHRONIC OBSTRUCTIVE PULMONARY DISEASE
     Dates: start: 20101109, end: 20121223
  13. ALBUTEROL HFA [Concomitant]
     Indication: CHRONIC OBSTRUCTIVE PULMONARY DISEASE
     Dates: start: 20121227, end: 20130307
  14. LEXAPRO [Concomitant]
     Indication: DEPRESSION
     Dates: start: 20110913, end: 20121223
  15. LEXAPRO [Concomitant]
     Indication: DEPRESSION
     Dates: start: 20121227, end: 20130307
  16. AVAPRO [Concomitant]
     Indication: HYPERTENSION
     Dates: start: 20110913, end: 20121223
  17. AVAPRO [Concomitant]
     Indication: HYPERTENSION
     Dates: start: 20121227, end: 20130307
  18. LASIX [Concomitant]
     Indication: HYPERTENSION
     Dates: start: 20110913, end: 20121223
  19. LASIX [Concomitant]
     Indication: HYPERTENSION
     Dates: start: 20121227, end: 20130307
  20. K-DUR [Concomitant]
     Indication: DIURETIC THERAPY
     Dates: start: 20110913, end: 20130219
  21. K-DUR [Concomitant]
     Indication: DIURETIC THERAPY
     Dates: start: 20130302
  22. NORVASC [Concomitant]
     Indication: HYPERTENSION
     Dates: start: 20110913
  23. TRAZODONE [Concomitant]
     Indication: INSOMNIA
     Dates: start: 20110913, end: 20121223
  24. TRAZODONE [Concomitant]
     Indication: INSOMNIA
     Dates: start: 20121227, end: 20130307
  25. SINGULAIR [Concomitant]
     Indication: HYPERSENSITIVITY
     Dates: start: 20110913
  26. LANTUS [Concomitant]
     Indication: TYPE 2 DIABETES MELLITUS
     Dates: start: 20121004, end: 20121223
  27. LANTUS [Concomitant]
     Indication: TYPE 2 DIABETES MELLITUS
     Dates: start: 20121227, end: 20130307
  28. NOVOLOG [Concomitant]
     Indication: TYPE 2 DIABETES MELLITUS
     Dates: start: 20110913, end: 20130307
  29. VESICARE [Concomitant]
     Indication: HYPERTONIC BLADDER
     Dates: start: 20110913, end: 20121223
  30. VESICARE [Concomitant]
     Indication: HYPERTONIC BLADDER
     Dates: start: 20121227, end: 20130307
  31. ADVAIR [Concomitant]
     Indication: CHRONIC OBSTRUCTIVE PULMONARY DISEASE
     Dates: start: 20120112, end: 20130218
  32. ADVAIR [Concomitant]
     Indication: CHRONIC OBSTRUCTIVE PULMONARY DISEASE
     Dates: start: 20130302, end: 20130307
  33. ALBUTEROL SOLUTION [Concomitant]
     Indication: CHRONIC OBSTRUCTIVE PULMONARY DISEASE
     Dates: start: 20120112, end: 20121223
  34. ALBUTEROL SOLUTION [Concomitant]
     Indication: CHRONIC OBSTRUCTIVE PULMONARY DISEASE
     Dates: start: 20130302, end: 20130307
  35. NEURONTIN [Concomitant]
     Indication: DIABETIC NEUROPATHY
     Dates: start: 20120112
  36. JANUVIA [Concomitant]
     Indication: TYPE 2 DIABETES MELLITUS
     Dates: start: 20120809, end: 20130219
  37. JANUVIA [Concomitant]
     Indication: TYPE 2 DIABETES MELLITUS
     Dates: start: 20130302
  38. HYDRALAZINE [Concomitant]
     Indication: HYPERTENSION
     Dates: start: 20121004
  39. HYDRALAZINE [Concomitant]
     Indication: HYPERTENSION
     Dates: start: 20130302
  40. CLONIDINE [Concomitant]
     Indication: HYPERTENSION
     Dates: start: 20121005, end: 20130219
  41. CLONIDINE [Concomitant]
     Indication: HYPERTENSION
     Dates: start: 20130302
  42. LAMISIL [Concomitant]
     Indication: ONYCHOMYCOSIS
     Dates: start: 20121004, end: 20121223

REACTIONS (5)
  - Colon cancer stage III [Not Recovered/Not Resolved]
  - Respiratory failure [Recovered/Resolved]
  - Hypertension [Recovered/Resolved]
  - Chest pain [Recovered/Resolved]
  - Abdominal pain [Not Recovered/Not Resolved]
